FAERS Safety Report 5472771-7 (Version None)
Quarter: 2007Q4

REPORT INFORMATION
  Report Type: 
  Country: None (occurrence: None)
  Receive Date: 20071001
  Receipt Date: 20061031
  Transmission Date: 20080405
  Serious: No
  Sender: FDA-Public Use
  Company Number: US-ASTRAZENECA-2006UW20874

PATIENT
  Age: 70 Year
  Sex: Female
  Weight: 59 kg

DRUGS (5)
  1. ARIMIDEX [Suspect]
     Indication: BREAST CANCER
     Route: 048
     Dates: start: 20040101, end: 20060101
  2. FOSAMAX [Concomitant]
     Indication: OSTEOPOROSIS
  3. TRAZODONE HCL [Concomitant]
  4. CALCIUM [Concomitant]
  5. VITAMINS [Concomitant]

REACTIONS (1)
  - TOOTH DISORDER [None]
